FAERS Safety Report 10153687 (Version 2)
Quarter: 2014Q2

REPORT INFORMATION
  Report Type: Spontaneous
  Country: FR (occurrence: FR)
  Receive Date: 20140506
  Receipt Date: 20140521
  Transmission Date: 20141212
  Serious: Yes (Other)
  Sender: FDA-Public Use
  Company Number: FR-ROCHE-1393289

PATIENT
  Age: 32 Year
  Sex: Female

DRUGS (8)
  1. MABTHERA [Suspect]
     Indication: PRODUCT USED FOR UNKNOWN INDICATION
     Route: 042
     Dates: start: 20140329, end: 20140329
  2. MABTHERA [Interacting]
     Route: 065
  3. MABTHERA [Interacting]
     Route: 042
     Dates: start: 20140412
  4. MABTHERA [Interacting]
     Route: 042
     Dates: start: 20140422
  5. MABTHERA [Interacting]
     Route: 042
     Dates: start: 20140429
  6. ENDOXAN [Interacting]
     Indication: PRODUCT USED FOR UNKNOWN INDICATION
     Route: 042
     Dates: start: 20140329, end: 20140329
  7. ENDOXAN [Interacting]
     Route: 065
  8. ENDOXAN [Interacting]
     Route: 065
     Dates: start: 20140429

REACTIONS (2)
  - Leukopenia [Recovered/Resolved]
  - Drug interaction [Unknown]
